FAERS Safety Report 5674114-2 (Version None)
Quarter: 2008Q1

REPORT INFORMATION
  Report Type: 
  Country: None (occurrence: None)
  Receive Date: 20080320
  Receipt Date: 20080310
  Transmission Date: 20080703
  Serious: No
  Sender: FDA-Public Use
  Company Number: US-JNJFOC-20080302617

PATIENT
  Sex: Female
  Weight: 54.43 kg

DRUGS (2)
  1. INVEGA [Suspect]
     Route: 048
  2. INVEGA [Suspect]
     Indication: MOOD SWINGS
     Route: 048

REACTIONS (2)
  - LACTATION DISORDER [None]
  - LACTATION PUERPERAL INCREASED [None]
